FAERS Safety Report 9831568 (Version 1)
Quarter: 2014Q1

REPORT INFORMATION
  Report Type: Spontaneous
  Country: US (occurrence: US)
  Receive Date: 20140121
  Receipt Date: 20140121
  Transmission Date: 20141002
  Serious: No
  Sender: FDA-Public Use
  Company Number: US-B.I. PHARMACEUTICALS,INC./RIDGEFIELD-2014-BI-01584BP

PATIENT
  Age: 82 Year
  Sex: Female
  Weight: 29.4 kg

DRUGS (5)
  1. COMBIVENT [Suspect]
     Indication: CHRONIC OBSTRUCTIVE PULMONARY DISEASE
     Dosage: STRENGTH: 18 MCG / 103 MCG; DAILY DOSE: 144 MCG / 824 MCG
     Route: 055
     Dates: end: 201309
  2. METOPROLOL [Concomitant]
     Indication: HEART RATE INCREASED
     Dosage: 200 MG
     Route: 048
  3. SIMVASTATIN [Concomitant]
     Indication: BLOOD CHOLESTEROL INCREASED
     Dosage: 10 MG
     Route: 048
  4. AMLODIPINE [Concomitant]
     Indication: HYPERTENSION
     Dosage: 2.5 MG
     Route: 048
  5. DIOVAN [Concomitant]
     Indication: HYPERTENSION
     Dosage: 80 MG
     Route: 048

REACTIONS (1)
  - Chronic obstructive pulmonary disease [Not Recovered/Not Resolved]
